FAERS Safety Report 8230020-0 (Version None)
Quarter: 2012Q1

REPORT INFORMATION
  Report Type: 
  Country: None (occurrence: None)
  Receive Date: 20120323
  Receipt Date: 20120316
  Transmission Date: 20120608
  Serious: Yes (Death, Other)
  Sender: FDA-Public Use
  Company Number: US-BRISTOL-MYERS SQUIBB COMPANY-16372237

PATIENT
  Sex: Female

DRUGS (1)
  1. TAXOL [Suspect]
     Indication: BREAST CANCER
     Dosage: GIVEN IN THE YEARS 2000-2001.
     Dates: start: 20000101, end: 20010101

REACTIONS (2)
  - METASTASES TO LIVER [None]
  - CORONARY ARTERY DISEASE [None]
